FAERS Safety Report 8959187 (Version 1)
Quarter: 2012Q4

REPORT INFORMATION
  Report Type: 
  Country: DE (occurrence: DE)
  Receive Date: 20121212
  Receipt Date: 20121212
  Transmission Date: 20130627
  Serious: Yes (Death)
  Sender: FDA-Public Use
  Company Number: DE-009507513-1211DEU011378

PATIENT
  Age: 55 Year
  Sex: Female
  Weight: 60 kg

DRUGS (3)
  1. VICTRELIS [Suspect]
     Indication: HEPATITIS C
     Dosage: 200 mg, UNK
     Route: 048
     Dates: start: 20120214, end: 20120529
  2. PEGASYS [Suspect]
     Indication: HEPATITIS C
     Dosage: 180 Microgram, UNK
     Dates: start: 20120129, end: 20120529
  3. COPEGUS [Suspect]
     Indication: HEPATITIS C
     Dosage: 1000 mg, UNK
     Dates: start: 20120125, end: 20120529

REACTIONS (3)
  - Endocarditis staphylococcal [Fatal]
  - Anaemia [Not Recovered/Not Resolved]
  - Staphylococcal sepsis [Unknown]
